FAERS Safety Report 5909704-2 (Version None)
Quarter: 2008Q4

REPORT INFORMATION
  Report Type: 
  Country: None (occurrence: None)
  Receive Date: 20081007
  Receipt Date: 20081001
  Transmission Date: 20090506
  Serious: Yes (Other)
  Sender: FDA-Public Use
  Company Number: JP-JNJFOC-20081001284

PATIENT

DRUGS (3)
  1. ITRIZOLE [Suspect]
     Indication: BRONCHOPULMONARY ASPERGILLOSIS
     Dosage: 200 MG TWICE A DAY
     Route: 048
  2. GASMOTIN [Concomitant]
     Route: 048
  3. URSO 250 [Concomitant]
     Route: 048

REACTIONS (1)
  - BLOOD PRESSURE INCREASED [None]
